FAERS Safety Report 8998619 (Version 1)
Quarter: 2013Q1

REPORT INFORMATION
  Report Type: Spontaneous
  Country: FI (occurrence: FI)
  Receive Date: 20130103
  Receipt Date: 20130103
  Transmission Date: 20140127
  Serious: Yes (Hospitalization)
  Sender: FDA-Public Use
  Company Number: FI-AMGEN-FINSP2012083196

PATIENT
  Age: 70 Year
  Sex: Male

DRUGS (3)
  1. XGEVA [Suspect]
     Indication: METASTASES TO BONE
     Dosage: 120 MG, QMO
     Route: 058
     Dates: start: 20121119, end: 20121119
  2. FIRMAGON                           /01764801/ [Concomitant]
     Indication: PROSTATE CANCER
     Dosage: UNK
     Route: 058
     Dates: start: 20121115
  3. CALCICHEW-D3 FORTE [Concomitant]
     Indication: HYPOCALCAEMIA
     Dosage: 1 G, QD
     Route: 048

REACTIONS (3)
  - Atrial fibrillation [Recovered/Resolved]
  - Electrocardiogram QT prolonged [Unknown]
  - Calcium ionised abnormal [Unknown]
